FAERS Safety Report 24433352 (Version 2)
Quarter: 2025Q3

REPORT INFORMATION
  Report Type: Spontaneous
  Country: EU (occurrence: EU)
  Receive Date: 20241014
  Receipt Date: 20250803
  Transmission Date: 20251021
  Serious: Yes (Hospitalization, Other)
  Sender: ALEXION PHARMACEUTICALS
  Company Number: EU-ASTRAZENECA-202409GLO012324FR

PATIENT
  Age: 30 Year
  Sex: Female

DRUGS (11)
  1. QUETIAPINE FUMARATE [Suspect]
     Active Substance: QUETIAPINE FUMARATE
     Route: 065
  2. BROMAZEPAM [Suspect]
     Active Substance: BROMAZEPAM
     Route: 065
  3. ALCOHOL [Suspect]
     Active Substance: ALCOHOL
     Dosage: BETWEEN 0 AND 10US PER DAY. CURRENTLY NO DAILY CONSUMPTION, VARYING BETWEEN 0 AND 8/10 STANDARD UNITS PE
  4. CANNABIS SATIVA SUBSP. INDICA TOP [Suspect]
     Active Substance: CANNABIS SATIVA SUBSP. INDICA TOP
     Dosage: 0 TO 20 JOINTS PER DAY. FIRST CONTACT AT AGE 15
     Dates: start: 2009
  5. COCAINE [Suspect]
     Active Substance: COCAINE
  6. HEROIN [Suspect]
     Active Substance: DIAMORPHINE
     Dosage: LAST USED 4-5 DAYS AGO (1G A DAY FOR 4 DAYS)
  7. CHLORPROMAZINE [Suspect]
     Active Substance: CHLORPROMAZINE
     Route: 065
  8. TRAMADOL [Suspect]
     Active Substance: TRAMADOL
     Dosage: UNK UNK, QD
     Route: 065
  9. LITHIUM [Suspect]
     Active Substance: LITHIUM
     Route: 065
  10. DIAZEPAM [Suspect]
     Active Substance: DIAZEPAM
     Route: 065
  11. CANNABIS SATIVA SUBSP. INDICA TOP [Suspect]
     Active Substance: CANNABIS SATIVA SUBSP. INDICA TOP

REACTIONS (6)
  - Drug abuse [Not Recovered/Not Resolved]
  - Withdrawal syndrome [Recovered/Resolved]
  - Enuresis [Recovering/Resolving]
  - Tremor [Recovering/Resolving]
  - Suicidal ideation [Unknown]
  - Anxiety [Unknown]

NARRATIVE: CASE EVENT DATE: 20240821
